FAERS Safety Report 4591181-8 (Version None)
Quarter: 2005Q1

REPORT INFORMATION
  Report Type: 
  Country: None (occurrence: None)
  Receive Date: 20050218
  Receipt Date: 20050203
  Transmission Date: 20050727
  Serious: No
  Sender: FDA-Public Use
  Company Number: 2005GB00239

PATIENT
  Age: 72 Year

DRUGS (7)
  1. GEFITINIB [Suspect]
     Indication: NON-SMALL CELL LUNG CANCER
     Dosage: 250 MG QD PO
     Route: 048
     Dates: start: 20050111, end: 20050202
  2. FOSAMAX [Concomitant]
  3. CALCICHEW [Concomitant]
  4. PENICILLIN V [Concomitant]
  5. MEBEVERINE [Concomitant]
  6. CODEINE LINCTUS [Concomitant]
  7. TRAMADOL HCL [Concomitant]

REACTIONS (2)
  - URTICARIA [None]
  - WHEEZING [None]
